FAERS Safety Report 7391135-2 (Version None)
Quarter: 2011Q2

REPORT INFORMATION
  Report Type: 
  Country: None (occurrence: None)
  Receive Date: 20110404
  Receipt Date: 20110323
  Transmission Date: 20111010
  Serious: Yes (Other)
  Sender: FDA-Public Use
  Company Number: US-AMGEN-USASP2011014624

PATIENT
  Age: 64 Year
  Sex: Female
  Weight: 126.53 kg

DRUGS (8)
  1. LISINOPRIL AND HYDROCHLOROTHIAZIDE [Concomitant]
     Dosage: UNK UNK, QD
  2. VITAMIN A [Concomitant]
  3. LYSINE HYDROCHLORIDE [Concomitant]
     Dosage: UNK UNK, TID
     Route: 048
  4. NPLATE [Suspect]
     Indication: IDIOPATHIC THROMBOCYTOPENIC PURPURA
     Dosage: 3 A?G, UNK
     Dates: start: 20100315
  5. GLIMEPIRIDE [Concomitant]
     Route: 048
  6. HYDROCODONE BITARTRATE AND ACETAMINOPHEN [Concomitant]
     Dosage: UNK UNK, Q4H
     Route: 048
  7. PRAVASTATIN [Concomitant]
  8. LEVOTHYROXINE SODIUM [Concomitant]
     Dosage: UNK UNK, QD

REACTIONS (3)
  - PLATELET COUNT DECREASED [None]
  - PLATELET COUNT INCREASED [None]
  - DEEP VEIN THROMBOSIS [None]
